FAERS Safety Report 17594846 (Version 3)
Quarter: 2022Q3

REPORT INFORMATION
  Report Type: Report from Study
  Country: CO (occurrence: CO)
  Receive Date: 20200328
  Receipt Date: 20220714
  Transmission Date: 20221027
  Serious: Yes (Disabling)
  Sender: FDA-Public Use
  Company Number: CO-NOVARTISPH-NVSC2020CO086121

PATIENT
  Age: 50 Year
  Sex: Male
  Weight: 85 kg

DRUGS (1)
  1. COSENTYX [Suspect]
     Active Substance: SECUKINUMAB
     Indication: Psoriasis
     Dosage: 300 MG, QMO (SINCE 2 YEARS AND A HALF)
     Route: 058
     Dates: start: 20200120

REACTIONS (5)
  - Subcutaneous abscess [Recovering/Resolving]
  - Abscess limb [Recovering/Resolving]
  - Pruritus [Recovered/Resolved]
  - Furuncle [Recovered/Resolved]
  - Furuncle [Recovered/Resolved]

NARRATIVE: CASE EVENT DATE: 20200319
